FAERS Safety Report 5297945-X (Version None)
Quarter: 2007Q2

REPORT INFORMATION
  Report Type: 
  Country: None (occurrence: None)
  Receive Date: 20070416
  Receipt Date: 20070412
  Transmission Date: 20071010
  Serious: Yes (Disabling)
  Sender: FDA-Public Use
  Company Number: JP-JPN-A200701634

PATIENT
  Age: 75 Year
  Sex: Male

DRUGS (1)
  1. SEREVENT [Suspect]
     Indication: DRUG USE FOR UNKNOWN INDICATION
     Dosage: 1UNIT TWICE PER DAY
     Route: 055
     Dates: start: 20070201

REACTIONS (1)
  - TONGUE DISORDER [None]
